FAERS Safety Report 6591950-9 (Version None)
Quarter: 2010Q1

REPORT INFORMATION
  Report Type: 
  Country: None (occurrence: None)
  Receive Date: 20100221
  Receipt Date: 20090813
  Transmission Date: 20100710
  Serious: No
  Sender: FDA-Public Use
  Company Number: US-ALLERGAN-0911344US

PATIENT
  Age: 65 Year
  Sex: Male

DRUGS (2)
  1. BOTOX [Suspect]
     Indication: NECK PAIN
     Dosage: 200 UNITS, SINGLE
     Route: 030
  2. BOTOX [Suspect]
     Indication: HEADACHE

REACTIONS (4)
  - HEADACHE [None]
  - INJECTION SITE PAIN [None]
  - NAUSEA [None]
  - VOMITING [None]
